FAERS Safety Report 5680536-6 (Version None)
Quarter: 2008Q1

REPORT INFORMATION
  Report Type: 
  Country: None (occurrence: None)
  Receive Date: 20080326
  Receipt Date: 20080319
  Transmission Date: 20080703
  Serious: Yes (Other)
  Sender: FDA-Public Use
  Company Number: US-MERCK-0803USA03343

PATIENT
  Age: 50 Year
  Sex: Male
  Weight: 115 kg

DRUGS (14)
  1. ZOCOR [Suspect]
     Indication: BLOOD CHOLESTEROL INCREASED
     Route: 048
     Dates: start: 19970101
  2. ZOCOR [Suspect]
     Route: 048
  3. ZOCOR [Suspect]
     Route: 048
  4. ZOCOR [Suspect]
     Route: 048
  5. MICRONASE [Concomitant]
     Route: 065
  6. FOLIC ACID [Concomitant]
     Route: 065
  7. UROXATRAL [Concomitant]
     Route: 065
  8. VITAMINS (UNSPECIFIED) [Concomitant]
     Route: 065
  9. OMEGA-3 MARINE TRIGLYCERIDES [Concomitant]
     Route: 065
  10. ASPIRIN [Concomitant]
     Route: 065
  11. VASOTEC [Concomitant]
     Route: 048
  12. METOPROLOL [Concomitant]
     Route: 065
  13. ZETIA [Suspect]
     Route: 048
  14. SIMVASTATIN [Suspect]
     Route: 048

REACTIONS (6)
  - ABDOMINAL DISTENSION [None]
  - FLATULENCE [None]
  - LIVER FUNCTION TEST ABNORMAL [None]
  - MYOCARDIAL INFARCTION [None]
  - RASH [None]
  - WEIGHT INCREASED [None]
